FAERS Safety Report 4848657-5 (Version None)
Quarter: 2005Q4

REPORT INFORMATION
  Report Type: 
  Country: None (occurrence: None)
  Receive Date: 20051206
  Receipt Date: 20051124
  Transmission Date: 20060501
  Serious: Yes (Disabling)
  Sender: FDA-Public Use
  Company Number: 2005161950

PATIENT
  Age: 60 Year
  Sex: Male

DRUGS (5)
  1. CETIRIZINE HCL [Suspect]
     Indication: URTICARIA
     Dosage: 5 MG, ORAL
     Route: 048
     Dates: start: 20051105, end: 20051111
  2. PHENYTOIN [Concomitant]
  3. CHLORPHENAMINE MALEATE (CHLORPHENAMINE MALEATE) [Concomitant]
  4. DEXAMETHASONE [Concomitant]
  5. LANSOPRAZOLE [Concomitant]

REACTIONS (4)
  - DYSKINESIA [None]
  - DYSTONIA [None]
  - EYE MOVEMENT DISORDER [None]
  - GAZE PALSY [None]
